FAERS Safety Report 23406237 (Version 1)
Quarter: 2024Q1

REPORT INFORMATION
  Report Type: Spontaneous
  Country: US (occurrence: US)
  Receive Date: 20240116
  Receipt Date: 20240116
  Transmission Date: 20240410
  Serious: No
  Sender: FDA-Public Use
  Company Number: US-PFIZER INC-202400011344

PATIENT
  Age: 39 Year
  Sex: Male

DRUGS (4)
  1. PAXLOVID [Suspect]
     Active Substance: NIRMATRELVIR\RITONAVIR
     Indication: COVID-19 treatment
     Dosage: UNK
     Dates: start: 20231230, end: 20240104
  2. ROSUVASTATIN [Concomitant]
     Active Substance: ROSUVASTATIN
  3. VASCEPA [Concomitant]
     Active Substance: ICOSAPENT ETHYL
  4. OTEZLA [Concomitant]
     Active Substance: APREMILAST

REACTIONS (2)
  - Disease recurrence [Not Recovered/Not Resolved]
  - COVID-19 [Not Recovered/Not Resolved]

NARRATIVE: CASE EVENT DATE: 20240110
